FAERS Safety Report 8076851-1 (Version None)
Quarter: 2012Q1

REPORT INFORMATION
  Report Type: 
  Country: None (occurrence: None)
  Receive Date: 20120127
  Receipt Date: 20120124
  Transmission Date: 20120608
  Serious: Yes (Hospitalization)
  Sender: FDA-Public Use
  Company Number: GB-JNJFOC-20110911803

PATIENT
  Sex: Female

DRUGS (4)
  1. GABAPENTIN [Concomitant]
  2. NAPROXEN [Concomitant]
  3. SIMPONI [Suspect]
     Indication: PSORIATIC ARTHROPATHY
     Dosage: LAST ADMINISTERED 22-SEP-2011
     Route: 058
     Dates: start: 20110922
  4. SIMPONI [Suspect]
     Route: 058
     Dates: start: 20111022, end: 20111122

REACTIONS (4)
  - PHARYNGITIS [None]
  - ARTHRALGIA [None]
  - OROPHARYNGEAL PAIN [None]
  - LOWER RESPIRATORY TRACT INFECTION [None]
